FAERS Safety Report 5639797-1 (Version None)
Quarter: 2008Q1

REPORT INFORMATION
  Report Type: 
  Country: None (occurrence: None)
  Receive Date: 20080225
  Receipt Date: 20080225
  Transmission Date: 20080703
  Serious: No
  Sender: FDA-Public Use
  Company Number: None

PATIENT
  Age: 47 Year
  Sex: Female

DRUGS (1)
  1. ALPRAZOLAM [Suspect]
     Dosage: 1MG TID
     Dates: start: 20011210, end: 20020318

REACTIONS (2)
  - DRUG INEFFECTIVE [None]
  - PANIC REACTION [None]
